FAERS Safety Report 5721774-3 (Version None)
Quarter: 2008Q2

REPORT INFORMATION
  Report Type: 
  Country: None (occurrence: None)
  Receive Date: 20080429
  Receipt Date: 20080417
  Transmission Date: 20081010
  Serious: Yes (Hospitalization)
  Sender: FDA-Public Use
  Company Number: DE-ROCHE-534907

PATIENT
  Sex: Male
  Weight: 92 kg

DRUGS (3)
  1. CAPECITABINE [Suspect]
     Dosage: PATIENT WAS IN ARM A: 2,500 MG/M2/DAY DIVIDED UP INTO 2 INDIVIDUAL DOSES (1,250 MG/M2 EACH), 2 WEEK+
     Route: 048
     Dates: end: 20071203
  2. CAPECITABINE [Suspect]
     Dosage: PATIENT WAS IN ARM A: 2,500 MG/M2/DAY DIVIDED UP INTO 2 INDIVIDUAL DOSES (1,250 MG/M2 EACH), 2 WEEK+
     Route: 048
     Dates: end: 20080116
  3. CAPECITABINE [Suspect]
     Dosage: DATE OF LAST DOSE PRIOR TO SAE REPORTED AS ^11/04/2008^ FREQUENCY REPORTED AS ^TWICE 5^
     Route: 048
     Dates: start: 20080328

REACTIONS (1)
  - CHOLANGITIS [None]
